FAERS Safety Report 7436124-4 (Version None)
Quarter: 2011Q2

REPORT INFORMATION
  Report Type: 
  Country: None (occurrence: None)
  Receive Date: 20110425
  Receipt Date: 20110420
  Transmission Date: 20111010
  Serious: Yes (Other)
  Sender: FDA-Public Use
  Company Number: US-ABBOTT-11P-163-0720914-00

PATIENT
  Sex: Female
  Weight: 68.1 kg

DRUGS (1)
  1. VICODIN [Suspect]
     Indication: PERTUSSIS
     Dosage: 1/2 DOSE
     Route: 048
     Dates: start: 20030101, end: 20030101

REACTIONS (1)
  - ANAPHYLACTIC SHOCK [None]
